FAERS Safety Report 8574161-7 (Version None)
Quarter: 2012Q3

REPORT INFORMATION
  Report Type: 
  Country: None (occurrence: None)
  Receive Date: 20120806
  Receipt Date: 20120731
  Transmission Date: 20120928
  Serious: No
  Sender: FDA-Public Use
  Company Number: US-PFIZER INC-2012147537

PATIENT
  Age: 74 Year
  Sex: Female

DRUGS (8)
  1. NIACIN [Concomitant]
     Dosage: UNK
  2. SPIRONOLACTONE [Concomitant]
     Dosage: UNK
  3. DETROL LA [Suspect]
     Indication: INCONTINENCE
     Dosage: UNK
     Dates: start: 20120401, end: 20120401
  4. HUMALOG [Concomitant]
     Dosage: UNK
  5. ATENOLOL [Concomitant]
     Dosage: UNK
  6. TOVIAZ [Suspect]
     Indication: BLADDER SPASM
  7. LOVASTATIN [Concomitant]
     Dosage: UNK
  8. TOVIAZ [Suspect]
     Indication: POLLAKIURIA
     Dosage: 4 MG, 1X/DAY, 1
     Route: 048

REACTIONS (2)
  - ABDOMINAL PAIN UPPER [None]
  - DIARRHOEA [None]
